FAERS Safety Report 9303343 (Version 3)
Quarter: 2013Q2

REPORT INFORMATION
  Report Type: Spontaneous
  Country: US (occurrence: US)
  Receive Date: 20130522
  Receipt Date: 20130618
  Transmission Date: 20140414
  Serious: No
  Sender: FDA-Public Use
  Company Number: US-PFIZER INC-2013154401

PATIENT
  Age: 72 Year
  Sex: Female
  Weight: 90.7 kg

DRUGS (9)
  1. SUTENT [Suspect]
     Indication: METASTATIC RENAL CELL CARCINOMA
     Dosage: 50 MG, 1X/DAY
     Dates: start: 20130501, end: 20130612
  2. METOPROLOL [Concomitant]
     Indication: HYPERTENSION
     Dosage: 100 MG, 2X/DAY
  3. CLONIDINE [Concomitant]
     Indication: HYPERTENSION
     Dosage: 0.2 MG, 3X/DAY
  4. CRESTOR [Concomitant]
     Indication: BLOOD CHOLESTEROL INCREASED
     Dosage: 40 MG, 1X/DAY
  5. OMEPRAZOLE [Concomitant]
     Dosage: UNK
  6. LOSARTAN [Concomitant]
     Indication: HYPERTENSION
     Dosage: 50 MG, 2X/DAY
     Dates: start: 201303
  7. CALCIUM [Concomitant]
     Dosage: UNK
  8. VITAMIN C [Concomitant]
     Dosage: UNK
  9. COUMADINE [Concomitant]
     Dosage: UNK

REACTIONS (8)
  - Contusion [Unknown]
  - Nausea [Recovering/Resolving]
  - Headache [Recovering/Resolving]
  - Glossodynia [Unknown]
  - Stomatitis [Unknown]
  - Vomiting [Unknown]
  - Fatigue [Unknown]
  - Oral pain [Unknown]
